FAERS Safety Report 11757287 (Version 1)
Quarter: 2015Q4

REPORT INFORMATION
  Report Type: Report from Study
  Country: GR (occurrence: GR)
  Receive Date: 20151120
  Receipt Date: 20151120
  Transmission Date: 20160304
  Serious: Yes (Other)
  Sender: FDA-Public Use
  Company Number: PHHY2015GR146836

PATIENT
  Age: 76 Year
  Sex: Male

DRUGS (1)
  1. AFINITOR [Suspect]
     Active Substance: EVEROLIMUS
     Indication: RENAL CANCER METASTATIC
     Route: 065
     Dates: start: 201303

REACTIONS (9)
  - Ascites [Unknown]
  - Haematocrit decreased [Unknown]
  - Metastasis [Unknown]
  - Stomatitis [Unknown]
  - Constipation [Unknown]
  - Malignant neoplasm progression [Unknown]
  - Haemoglobin decreased [Unknown]
  - Weight decreased [Unknown]
  - Fatigue [Unknown]
